FAERS Safety Report 16855226 (Version 1)
Quarter: 2019Q3

REPORT INFORMATION
  Report Type: Spontaneous
  Country: US (occurrence: US)
  Receive Date: 20190926
  Receipt Date: 20190926
  Transmission Date: 20191005
  Serious: No
  Sender: FDA-Public Use
  Company Number: US-BION-008101

PATIENT
  Age: 50 Year
  Sex: Female
  Weight: 163.29 kg

DRUGS (1)
  1. IMODIUM A-D [Suspect]
     Active Substance: LOPERAMIDE HYDROCHLORIDE
     Indication: IRRITABLE BOWEL SYNDROME
     Dosage: 2 SOFTGELS ONCE
     Route: 048
     Dates: start: 20190613, end: 20190613

REACTIONS (2)
  - Product use in unapproved indication [Not Recovered/Not Resolved]
  - Product packaging difficult to open [Unknown]
